FAERS Safety Report 24861109 (Version 1)
Quarter: 2025Q1

REPORT INFORMATION
  Report Type: Spontaneous
  Country: US (occurrence: US)
  Receive Date: 20250120
  Receipt Date: 20250120
  Transmission Date: 20250409
  Serious: Yes (Death, Hospitalization, Other)
  Sender: SPECGX
  Company Number: US-SPECGX-T202500313

PATIENT
  Age: 60 Year
  Sex: Male

DRUGS (16)
  1. METHADONE [Suspect]
     Active Substance: METHADONE HYDROCHLORIDE
     Indication: Back pain
     Route: 048
  2. FENTANYL TRANSDERMAL SYSTEM [Suspect]
     Active Substance: FENTANYL
     Indication: Back pain
     Route: 062
  3. ACETAMINOPHEN\HYDROCODONE [Suspect]
     Active Substance: ACETAMINOPHEN\HYDROCODONE
     Indication: Back pain
     Route: 048
  4. PAMELOR [Suspect]
     Active Substance: NORTRIPTYLINE HYDROCHLORIDE
     Indication: Pain
     Dosage: 10 MILLIGRAM, QHS
     Route: 065
  5. SODIUM THIOSULFATE [Suspect]
     Active Substance: SODIUM THIOSULFATE
     Indication: Calciphylaxis
     Route: 042
  6. ROPIVACAINE [Suspect]
     Active Substance: ROPIVACAINE
     Indication: Pain
     Route: 065
  7. HYDROMORPHONE [Suspect]
     Active Substance: HYDROMORPHONE
     Indication: Pain
     Route: 042
  8. HYDROMORPHONE [Suspect]
     Active Substance: HYDROMORPHONE
     Route: 065
  9. HYDROMORPHONE [Suspect]
     Active Substance: HYDROMORPHONE
     Route: 065
  10. HYDROMORPHONE [Suspect]
     Active Substance: HYDROMORPHONE
     Route: 065
  11. GABAPENTIN [Suspect]
     Active Substance: GABAPENTIN
     Indication: Pain
     Route: 048
  12. CELECOXIB [Suspect]
     Active Substance: CELECOXIB
     Indication: Pain
     Dosage: 400 MILLIGRAM, QD
     Route: 065
  13. KETAMINE [Suspect]
     Active Substance: KETAMINE
     Indication: Pain
     Dosage: 150 MILLIGRAM, QD
     Route: 048
  14. ACETAMINOPHEN [Suspect]
     Active Substance: ACETAMINOPHEN
     Indication: Pain
     Dosage: 3000 MILLIGRAM, QD
     Route: 042
  15. SALSALATE [Suspect]
     Active Substance: SALSALATE
     Indication: Pain
     Dosage: 2250 MILLIGRAM, QD
     Route: 065
  16. KETOROLAC [Suspect]
     Active Substance: KETOROLAC TROMETHAMINE
     Indication: Pain
     Dosage: 45 MILLIGRAM, QD
     Route: 042

REACTIONS (10)
  - Death [Fatal]
  - Pain in extremity [Unknown]
  - Back pain [Unknown]
  - Hypotension [Unknown]
  - Renal replacement therapy [Unknown]
  - Haemofiltration [Unknown]
  - Electrocardiogram QT prolonged [Unknown]
  - Haemodynamic instability [Unknown]
  - Product use in unapproved indication [Unknown]
  - Therapeutic product effect incomplete [Unknown]
